APPROVED DRUG PRODUCT: OPTIRAY 320
Active Ingredient: IOVERSOL
Strength: 68%
Dosage Form/Route: INJECTABLE;INJECTION
Application: N019710 | Product #001
Applicant: LIEBEL-FLARSHEIM CO LLC
Approved: Dec 30, 1988 | RLD: Yes | RS: Yes | Type: RX